FAERS Safety Report 22061640 (Version 1)
Quarter: 2023Q1

REPORT INFORMATION
  Report Type: Report from Study
  Country: BR (occurrence: BR)
  Receive Date: 20230304
  Receipt Date: 20230304
  Transmission Date: 20230418
  Serious: Yes (Other)
  Sender: FDA-Public Use
  Company Number: BR-ABBVIE-22K-020-4465842-00

PATIENT
  Age: 63 Year
  Sex: Female
  Weight: 58 kg

DRUGS (3)
  1. RINVOQ [Suspect]
     Active Substance: UPADACITINIB
     Indication: Rheumatoid arthritis
     Dosage: 1 TABLET
     Route: 048
     Dates: start: 20210527
  2. OMEPRAZOLE [Concomitant]
     Active Substance: OMEPRAZOLE
     Indication: Gastric disorder
  3. FERROUS SULFATE [Concomitant]
     Active Substance: FERROUS SULFATE
     Indication: Anaemia

REACTIONS (10)
  - Myocardial infarction [Recovering/Resolving]
  - Intraocular pressure increased [Not Recovered/Not Resolved]
  - Stress [Recovering/Resolving]
  - Glaucoma [Recovered/Resolved]
  - Hypertension [Unknown]
  - Anaemia [Unknown]
  - Glaucoma [Unknown]
  - Nausea [Unknown]
  - Cataract [Unknown]
  - Hypersensitivity [Unknown]

NARRATIVE: CASE EVENT DATE: 20220601
